FAERS Safety Report 7928487-8 (Version None)
Quarter: 2011Q4

REPORT INFORMATION
  Report Type: 
  Country: None (occurrence: None)
  Receive Date: 20111118
  Receipt Date: 20111116
  Transmission Date: 20120403
  Serious: Yes (Death)
  Sender: FDA-Public Use
  Company Number: PHHY2011MX100861

PATIENT
  Age: 60 Year
  Sex: Male

DRUGS (2)
  1. SANDOSTATIN [Suspect]
  2. AFINITOR [Suspect]
     Dosage: 5 MG, UNK

REACTIONS (1)
  - DEATH [None]
